FAERS Safety Report 7551800-0 (Version None)
Quarter: 2011Q2

REPORT INFORMATION
  Report Type: 
  Country: None (occurrence: None)
  Receive Date: 20110616
  Receipt Date: 20110523
  Transmission Date: 20111010
  Serious: Yes (Hospitalization, Other)
  Sender: FDA-Public Use
  Company Number: US-BAYER-201038548NA

PATIENT
  Age: 22 Year
  Sex: Female
  Weight: 53.515 kg

DRUGS (8)
  1. YASMIN [Suspect]
     Dosage: UNK UNK, QD
     Route: 048
     Dates: start: 20070101, end: 20080101
  2. OXYCODONE HCL [Concomitant]
     Indication: PAIN
     Dosage: 5 MG, 4-6 HOURS - PRN
     Route: 048
     Dates: start: 20080930
  3. OXYCODONE HCL [Concomitant]
     Dosage: 325 MG, 4-6 HOURS -PRN
  4. PROMETHAZINE [Concomitant]
     Dosage: 25 MG, 4-6 HOURS - PRN
     Route: 048
     Dates: start: 20080930
  5. DROSPIRENONE AND ETHINYL ESTRADIOL [Suspect]
     Dosage: UNK
     Dates: start: 20070101, end: 20080101
  6. BENTYL [Concomitant]
     Indication: PAIN
     Dosage: UNK
     Dates: start: 20081010
  7. YAZ [Suspect]
  8. DICYCLOMINE [Concomitant]

REACTIONS (3)
  - PAIN [None]
  - CHOLELITHIASIS [None]
  - CHOLECYSTITIS CHRONIC [None]
